FAERS Safety Report 8169522 (Version 3)
Quarter: 2012Q4

REPORT INFORMATION
  Report Type: 
  Country: IT (occurrence: IT)
  Receive Date: 20111005
  Receipt Date: 20120927
  Transmission Date: 20130627
  Serious: Yes (Other)
  Sender: FDA-Public Use
  Company Number: PHHY2011IT85026

PATIENT
  Age: 71 Year
  Sex: Male

DRUGS (4)
  1. TASIGNA [Suspect]
     Indication: CHRONIC MYELOID LEUKAEMIA
     Dosage: 800 mg, daily
     Route: 048
     Dates: start: 20101108, end: 20110812
  2. TASIGNA [Suspect]
     Dosage: 800 mg, daily
     Route: 048
  3. CEPHALOSPORIN [Concomitant]
     Dosage: UNK UKN, UNK
  4. ROSUVASTATIN [Concomitant]
     Dosage: UNK UKN, UNK

REACTIONS (1)
  - Acute coronary syndrome [Recovering/Resolving]
